FAERS Safety Report 16724858 (Version 1)
Quarter: 2019Q3

REPORT INFORMATION
  Report Type: Spontaneous
  Country: DE (occurrence: DE)
  Receive Date: 20190821
  Receipt Date: 20190821
  Transmission Date: 20191005
  Serious: Yes (Hospitalization)
  Sender: FDA-Public Use
  Company Number: DE-TEVA-2019-DE-1094093

PATIENT
  Age: 75 Year
  Sex: Female

DRUGS (15)
  1. DEXAMETHASONE. [Suspect]
     Active Substance: DEXAMETHASONE
     Dosage: 8 MG, 1-0-0-0
     Route: 065
  2. PANTOPRAZOL [Concomitant]
     Active Substance: PANTOPRAZOLE SODIUM
     Dosage: 40 MG, 1-0-0-0
  3. XIPAMIDE [Concomitant]
     Active Substance: XIPAMIDE
     Dosage: 10 MG, 1-0-0-0
  4. COLECALCIFEROL [Concomitant]
     Active Substance: CHOLECALCIFEROL
     Dosage: 1000 IE, 1-0-0-0
  5. APIXABAN [Concomitant]
     Active Substance: APIXABAN
     Dosage: 2.5 MG, 1-0-1-0
  6. TIOTROPIUM BROMIDE [Concomitant]
     Active Substance: TIOTROPIUM BROMIDE
     Dosage: NK MICROGRAM, 2-0-0-0
     Route: 055
  7. SIMVASTATIN. [Concomitant]
     Active Substance: SIMVASTATIN
     Dosage: 20 MG, 0-0-1-0
  8. PREDNISOLON [Concomitant]
     Active Substance: PREDNISOLONE
     Dosage: 20 MG, 1-0-0-0
  9. RAMIPRIL. [Concomitant]
     Active Substance: RAMIPRIL
     Dosage: 10 MG, 1-0-0-0
  10. SALBUTAMOL W/IPRATROPIUM [Concomitant]
     Active Substance: ALBUTEROL\IPRATROPIUM
     Dosage: NK MICROGRAM, 1-1-1-1
     Route: 055
  11. DOXEPIN [Concomitant]
     Active Substance: DOXEPIN
     Dosage: 100 MG, 0-0-0-1
  12. TORASEMID [Concomitant]
     Active Substance: TORSEMIDE
     Dosage: 10 MG, 1-1-0-0
  13. LEVOTHYROXINE SODIUM. [Concomitant]
     Active Substance: LEVOTHYROXINE SODIUM
     Dosage: 100 MICROGRAM, 1-0-0-0
  14. BORTEZOMIB. [Suspect]
     Active Substance: BORTEZOMIB
     Dosage: 1.8 MG, 1XP.D. LAST 19.04.2018
     Route: 058
  15. AMLODIPIN [Concomitant]
     Active Substance: AMLODIPINE BESYLATE
     Dosage: 10 MG, 0-0-1-0

REACTIONS (3)
  - Vomiting [Unknown]
  - Nausea [Unknown]
  - Diarrhoea [Unknown]
